FAERS Safety Report 8798545 (Version 2)
Quarter: 2012Q4

REPORT INFORMATION
  Report Type: 
  Country: US (occurrence: US)
  Receive Date: 20120920
  Receipt Date: 20121023
  Transmission Date: 20130627
  Serious: Yes (Life-Threatening, Hospitalization, Other)
  Sender: FDA-Public Use
  Company Number: US-CELGENEUS-163-21880-12092061

PATIENT
  Age: 14 Year
  Sex: Female
  Weight: 52.2 kg

DRUGS (5)
  1. REVLIMID [Suspect]
     Indication: OPTIC TRACT GLIOMA
     Dosage: 25 Milligram
     Route: 048
     Dates: start: 20120530, end: 20120619
  2. REVLIMID [Suspect]
     Dosage: 25 Milligram
     Route: 048
     Dates: start: 20120628, end: 20120717
  3. REVLIMID [Suspect]
     Dosage: 25 Milligram
     Route: 048
     Dates: start: 20120726, end: 20120815
  4. SERTRALINE [Concomitant]
     Indication: DRUG USE FOR UNKNOWN INDICATION
     Dosage: 37.5 Milligram
     Route: 065
  5. NORTRIPTYLINE [Concomitant]
     Indication: DRUG USE FOR UNKNOWN INDICATION
     Dosage: 10 Milligram
     Route: 065

REACTIONS (1)
  - Cerebellar ischaemia [Recovering/Resolving]
